FAERS Safety Report 7425558-X (Version None)
Quarter: 2011Q2

REPORT INFORMATION
  Report Type: 
  Country: None (occurrence: None)
  Receive Date: 20110420
  Receipt Date: 20110411
  Transmission Date: 20111010
  Serious: Yes (Other)
  Sender: FDA-Public Use
  Company Number: JP-ASTRAZENECA-2011SE21878

PATIENT
  Age: 79 Year
  Sex: Female

DRUGS (4)
  1. PL GRAN [Suspect]
     Route: 048
  2. HALCION [Suspect]
  3. BEZATOL [Suspect]
     Route: 048
  4. SEROQUEL [Suspect]
     Route: 048

REACTIONS (1)
  - DRUG ERUPTION [None]
